FAERS Safety Report 8485552-7 (Version None)
Quarter: 2012Q2

REPORT INFORMATION
  Report Type: 
  Country: None (occurrence: None)
  Receive Date: 20120627
  Receipt Date: 20120627
  Transmission Date: 20120825
  Serious: Yes (Hospitalization)
  Sender: FDA-Public Use
  Company Number: None

PATIENT
  Age: 92 Year
  Sex: Female
  Weight: 76 kg

DRUGS (1)
  1. RIVAROXABAN 20 MG JANSSEN [Suspect]
     Dosage: 20 MG ONCE DAILY PO
     Route: 048

REACTIONS (3)
  - MELAENA [None]
  - HYPOTENSION [None]
  - ANAEMIA [None]
